FAERS Safety Report 15184035 (Version 9)
Quarter: 2022Q1

REPORT INFORMATION
  Report Type: Report from Study
  Country: FR (occurrence: FR)
  Receive Date: 20180723
  Receipt Date: 20220307
  Transmission Date: 20220423
  Serious: Yes (Death, Hospitalization, Other)
  Sender: FDA-Public Use
  Company Number: FR-TAKEDA-2018MPI003421

PATIENT
  Age: 62 Year
  Sex: Male
  Weight: 63 kg

DRUGS (30)
  1. DEXAMETHASONE [Suspect]
     Active Substance: DEXAMETHASONE
     Indication: Product used for unknown indication
     Dosage: 40 MILLIGRAM (START DATE: 21-FEB-2018 )
     Route: 065
     Dates: end: 20180327
  2. IXAZOMIB [Suspect]
     Active Substance: IXAZOMIB
     Indication: Plasma cell myeloma
     Dosage: 4 MG, QW 1/WEEK (START: 02-MAR-2018)
     Route: 048
     Dates: end: 20180327
  3. REVLIMID [Suspect]
     Active Substance: LENALIDOMIDE
     Indication: Product used for unknown indication
     Dosage: 25 MILLIGRAM (START: 21-FEB-2018 )
     Dates: end: 20180327
  4. MOVICOL [Concomitant]
     Active Substance: POLYETHYLENE GLYCOL 3350\POTASSIUM CHLORIDE\SODIUM BICARBONATE\SODIUM CHLORIDE
     Indication: Product used for unknown indication
     Dosage: UNK (START: 20-JUN-2017)
     Route: 065
  5. MOVICOL [Concomitant]
     Active Substance: POLYETHYLENE GLYCOL 3350\POTASSIUM CHLORIDE\SODIUM BICARBONATE\SODIUM CHLORIDE
     Dosage: UNK
     Route: 048
     Dates: start: 20180402
  6. BISOPROLOL [Concomitant]
     Active Substance: BISOPROLOL
     Indication: Product used for unknown indication
     Dosage: 5 MILLIGRAM, QD (START : 20-JUN-2017)
  7. POTASSIUM CHLORIDE [Concomitant]
     Active Substance: POTASSIUM CHLORIDE
     Indication: Product used for unknown indication
     Dosage: 3 UNK, QD (UNK, TID)
  8. OXYCODONE [Concomitant]
     Active Substance: OXYCODONE
     Indication: Product used for unknown indication
     Dosage: 20 MILLIGRAM, QD (10 MG, BID)
     Route: 065
  9. PENICILLIN V [Concomitant]
     Active Substance: PENICILLIN V
     Indication: Product used for unknown indication
     Dosage: 2 UNK, QD (UNK, BID) (START: 20-JUN-2017)
  10. ESOMEPRAZOLE [Concomitant]
     Active Substance: ESOMEPRAZOLE
     Indication: Product used for unknown indication
     Dosage: 20 MILLIGRAM, QD
     Route: 065
  11. OXYCODONE HYDROCHLORIDE [Concomitant]
     Active Substance: OXYCODONE HYDROCHLORIDE
     Indication: Pain
     Dosage: 20 MG, QID (5 MG, QID)
  12. ELIQUIS [Concomitant]
     Active Substance: APIXABAN
     Indication: Product used for unknown indication
     Dosage: 10 MG, QD (5 MG, BID) (START:20-JUN-2017)
  13. BACTRIM [Concomitant]
     Active Substance: SULFAMETHOXAZOLE\TRIMETHOPRIM
     Indication: Product used for unknown indication
     Dosage: UNK, QW
     Dates: start: 20130101
  14. FOLIC ACID [Concomitant]
     Active Substance: FOLIC ACID
     Indication: Product used for unknown indication
     Dosage: 15 MG, QD (5 MG, TID)(START: 20-JUN-2017)
  15. KARDEGIC [Concomitant]
     Active Substance: ASPIRIN DL-LYSINE
     Indication: Product used for unknown indication
     Dosage: 75 MILLIGRAM, QD
     Dates: start: 20130101
  16. DOLIPRANE [Concomitant]
     Active Substance: ACETAMINOPHEN
     Indication: Pyrexia
     Dosage: 4 GRAM, QD (1G QID)
  17. DOLIPRANE [Concomitant]
     Active Substance: ACETAMINOPHEN
     Indication: Pain
     Dosage: UNK
  18. TAMSULOSIN [Concomitant]
     Active Substance: TAMSULOSIN
     Indication: Product used for unknown indication
     Dosage: 0.4 MILLIGRAM, QD
  19. POTASSIUM BITARTRATE\SODIUM BICARBONATE [Concomitant]
     Active Substance: POTASSIUM BITARTRATE\SODIUM BICARBONATE
     Indication: Product used for unknown indication
     Dosage: UNK
  20. NOVORAPID [Concomitant]
     Active Substance: INSULIN ASPART
     Indication: Product used for unknown indication
     Dosage: 3 DOSAGE FORM, TID (START: 10-FEB-2017)
  21. COALGAN [Concomitant]
     Indication: Haemorrhage
     Dosage: UNK
     Route: 065
  22. LANSOPRAZOLE [Concomitant]
     Active Substance: LANSOPRAZOLE
     Dosage: 300 MILLIGRAM (START: 30-MAR-2018)
     Route: 048
  23. ALPRAZOLAM [Concomitant]
     Active Substance: ALPRAZOLAM
     Dosage: 0.5 MILLIGRAM (START: 31-MAR-2018 )
     Route: 048
  24. ACETAMINOPHEN [Concomitant]
     Active Substance: ACETAMINOPHEN
     Indication: Pain
     Dosage: 4000 MILLIGRAM, QD, 1000 MG, QID(START: 29-MAR-2018)
     Route: 048
  25. PREDNISOLONE [Concomitant]
     Active Substance: PREDNISOLONE
     Dosage: 20 MILLIGRAM (START:31-MAR-2018 )
  26. FLUCONAZOLE [Concomitant]
     Active Substance: FLUCONAZOLE
     Dosage: 400 MILLIGRAM(START: 31-MAR-2018 )
     Route: 048
  27. HALOPERIDOL [Concomitant]
     Active Substance: HALOPERIDOL
     Dosage: UNK(START: 31-MAR-2018)
     Route: 058
  28. MORPHINE HYDROCHLORIDE [Concomitant]
     Active Substance: MORPHINE HYDROCHLORIDE
     Indication: Pain
     Dosage: 0.15 UNK, UNK (START: 04-APR-2018)
     Route: 058
  29. POLYETHYLENE GLYCOL [Concomitant]
     Active Substance: POLYETHYLENE GLYCOL
     Dosage: UNK (START: 02-APR-2018)
     Route: 048
  30. VALACYCLOVIR HYDROCHLORIDE [Concomitant]
     Active Substance: VALACYCLOVIR HYDROCHLORIDE
     Dosage: 1000 MILLIGRAM, QD (500 MG, BID)(START: 20-JUN-2017)

REACTIONS (23)
  - Death [Fatal]
  - Plasma cell myeloma [Fatal]
  - General physical health deterioration [Fatal]
  - Palliative care [Not Recovered/Not Resolved]
  - Cholestasis [Unknown]
  - Cachexia [Unknown]
  - Emphysema [Unknown]
  - Skin swelling [Unknown]
  - Penis disorder [Unknown]
  - Dysphagia [Unknown]
  - Eschar [Not Recovered/Not Resolved]
  - Oral candidiasis [Unknown]
  - Adverse event [Not Recovered/Not Resolved]
  - Dehydration [Unknown]
  - Hypotension [Recovering/Resolving]
  - Anaemia [Unknown]
  - Septic shock [Recovering/Resolving]
  - Neutropenia [Recovered/Resolved]
  - Confusional state [Unknown]
  - Hypokalaemia [Unknown]
  - White blood cell count decreased [Recovered/Resolved]
  - Thrombocytopenia [Recovered/Resolved]
  - Lymphocyte count decreased [Recovered/Resolved]

NARRATIVE: CASE EVENT DATE: 20180221
